FAERS Safety Report 9154688 (Version 1)
Quarter: 2013Q1

REPORT INFORMATION
  Report Type: Spontaneous
  Country: CH (occurrence: CH)
  Receive Date: 20130311
  Receipt Date: 20130311
  Transmission Date: 20140127
  Serious: Yes (Other)
  Sender: FDA-Public Use
  Company Number: PHHY2013CH022972

PATIENT
  Age: 65 Year
  Sex: Female
  Weight: 95 kg

DRUGS (6)
  1. GILENYA [Suspect]
     Indication: MULTIPLE SCLEROSIS
     Dosage: 0.5 MG, QD
     Route: 048
     Dates: start: 20110829
  2. FLUOXETIN [Concomitant]
     Dosage: 60 MG, QD
     Route: 048
  3. SORTIS [Concomitant]
     Dosage: 20 MG, QD
     Route: 048
  4. ATACAND [Concomitant]
     Dosage: 32 MG, QD
     Route: 048
  5. SIFROL [Concomitant]
     Route: 048
  6. PARIET [Concomitant]
     Dosage: 20 MG, QD
     Route: 048

REACTIONS (7)
  - Asthma [Not Recovered/Not Resolved]
  - Bronchial obstruction [Recovering/Resolving]
  - Increased bronchial secretion [Not Recovered/Not Resolved]
  - Cough [Recovering/Resolving]
  - Dyspnoea [Not Recovered/Not Resolved]
  - Hypoventilation [Unknown]
  - Blood pressure increased [Unknown]
